FAERS Safety Report 25847388 (Version 2)
Quarter: 2025Q3

REPORT INFORMATION
  Report Type: Spontaneous
  Country: CN (occurrence: CN)
  Receive Date: 20250925
  Receipt Date: 20250926
  Transmission Date: 20251020
  Serious: Yes (Life-Threatening, Hospitalization, Other)
  Sender: PFIZER
  Company Number: CN-MLMSERVICE-20250915-PI646164-00214-1

PATIENT
  Age: 50 Year
  Sex: Female
  Weight: 40 kg

DRUGS (12)
  1. MEROPENEM [Suspect]
     Active Substance: MEROPENEM
     Indication: Anti-infective therapy
     Dosage: 1 G, 2X/DAY (1 G IVGTT Q12H)
     Route: 042
     Dates: start: 20240818
  2. MEROPENEM [Suspect]
     Active Substance: MEROPENEM
     Indication: Haematological infection
     Dosage: 1 G, 2X/DAY
     Route: 042
     Dates: start: 20240820, end: 20240829
  3. MEROPENEM [Suspect]
     Active Substance: MEROPENEM
     Dosage: 0.5 G, 3X/DAY (0.5 G IVGTT Q8H)
     Route: 042
     Dates: start: 20240903
  4. MEROPENEM [Suspect]
     Active Substance: MEROPENEM
     Dosage: 0.5 G, 3X/DAY (0.5 G IVGTT Q8H)
     Route: 042
     Dates: start: 20240904
  5. MEROPENEM [Suspect]
     Active Substance: MEROPENEM
     Dosage: 0.5 G, 3X/DAY (0.5 G IVGTT Q8H)
     Route: 042
     Dates: start: 20240906, end: 20240909
  6. CEFOPERAZONE SODIUM\SULBACTAM SODIUM [Suspect]
     Active Substance: CEFOPERAZONE SODIUM\SULBACTAM SODIUM
     Indication: Anti-infective therapy
     Dosage: 3 G, 2X/DAY (3 G IVGTT Q12H)
     Route: 042
     Dates: start: 20240829, end: 20240903
  7. INSULIN GLARGINE [Concomitant]
     Active Substance: INSULIN GLARGINE
     Indication: Type 2 diabetes mellitus
     Dosage: 28 IU, 1X/DAY
  8. AMLODIPINE BESYLATE [Concomitant]
     Active Substance: AMLODIPINE BESYLATE
     Indication: Nocturnal hypertension
     Dosage: 10 MG, 1X/DAY
     Route: 048
     Dates: start: 2022
  9. TIGECYCLINE [Concomitant]
     Active Substance: TIGECYCLINE
     Indication: Anti-infective therapy
     Dosage: 100 MG, 2X/DAY (100MG IVGTT Q12H)
     Route: 042
     Dates: start: 20240829, end: 20240903
  10. VANCOMYCIN [Concomitant]
     Active Substance: VANCOMYCIN
     Indication: Anti-infective therapy
     Dosage: 1 G, 2X/DAY (1 G IVGTT Q12H)
     Route: 042
     Dates: start: 20240820, end: 20240829
  11. VANCOMYCIN [Concomitant]
     Active Substance: VANCOMYCIN
     Dosage: 0.2 G, 2X/DAY
     Route: 048
     Dates: start: 20240909
  12. VANCOMYCIN [Concomitant]
     Active Substance: VANCOMYCIN
     Dosage: 0.2 G, 2X/DAY
     Route: 048
     Dates: start: 20240913

REACTIONS (1)
  - Thrombocytopenia [Recovering/Resolving]

NARRATIVE: CASE EVENT DATE: 20240801
